FAERS Safety Report 5338917-6 (Version None)
Quarter: 2007Q2

REPORT INFORMATION
  Report Type: 
  Country: None (occurrence: None)
  Receive Date: 20070404
  Receipt Date: 20060926
  Transmission Date: 20071010
  Serious: Yes (Other)
  Sender: FDA-Public Use
  Company Number: HQWYE359129SEP06

PATIENT
  Age: 76 Year
  Sex: Female
  Weight: 64.92 kg

DRUGS (2)
  1. ALAVERT [Suspect]
     Indication: HYPERSENSITIVITY
     Dosage: ONE TABLET ONE TIME, ORAL
     Route: 048
     Dates: start: 20060926, end: 20060926
  2. ATENOLOL [Concomitant]

REACTIONS (2)
  - DRUG ADMINISTRATION ERROR [None]
  - DYSGEUSIA [None]
